FAERS Safety Report 7783249-X (Version None)
Quarter: 2011Q3

REPORT INFORMATION
  Report Type: 
  Country: None (occurrence: None)
  Receive Date: 20110928
  Receipt Date: 20110915
  Transmission Date: 20111222
  Serious: Yes (Other)
  Sender: FDA-Public Use
  Company Number: US-JNJFOC-20110908277

PATIENT
  Age: 48 Year
  Sex: Female
  Weight: 77.11 kg

DRUGS (2)
  1. LISTERINE TOTAL CARE PLUS WHITENING MOUTH WASH [Suspect]
     Indication: DENTAL CARE
     Dosage: 1/2 CAPFUL FOUR TIMES TOTAL
     Route: 048
  2. LISTERINE TOTAL CARE PLUS WHITENING MOUTH WASH [Suspect]
     Indication: BREATH ODOUR
     Dosage: 1/2 CAPFUL FOUR TIMES TOTAL
     Route: 048

REACTIONS (1)
  - CHEMICAL INJURY [None]
